FAERS Safety Report 13329874 (Version 1)
Quarter: 2017Q1

REPORT INFORMATION
  Report Type: Report from Study
  Country: None (occurrence: PR)
  Receive Date: 20170313
  Receipt Date: 20170313
  Transmission Date: 20170428
  Serious: Yes (Other)
  Sender: FDA-Public Use
  Company Number: PR-ABBVIE-17P-131-1904956-00

PATIENT
  Sex: Female

DRUGS (1)
  1. HUMIRA [Suspect]
     Active Substance: ADALIMUMAB
     Indication: RHEUMATOID ARTHRITIS
     Route: 058
     Dates: start: 20131019, end: 201605

REACTIONS (4)
  - Vaginal haemorrhage [Recovered/Resolved]
  - Foetal death [Unknown]
  - Exposure during pregnancy [Unknown]
  - Human chorionic gonadotropin decreased [Unknown]

NARRATIVE: CASE EVENT DATE: 2016
